FAERS Safety Report 7002456-7 (Version None)
Quarter: 2010Q3

REPORT INFORMATION
  Report Type: 
  Country: None (occurrence: None)
  Receive Date: 20100920
  Receipt Date: 20100917
  Transmission Date: 20110219
  Serious: Yes (Other)
  Sender: FDA-Public Use
  Company Number: ES-BRISTOL-MYERS SQUIBB COMPANY-15290588

PATIENT
  Age: 34 Year
  Sex: Male

DRUGS (2)
  1. SUSTIVA [Suspect]
     Indication: HIV INFECTION
     Route: 048
     Dates: start: 20051201, end: 20060606
  2. KIVEXA [Concomitant]
     Indication: HIV INFECTION
     Dosage: 1 DF = 600/300MG
     Route: 048
     Dates: start: 20051201

REACTIONS (3)
  - DEPERSONALISATION [None]
  - INSOMNIA [None]
  - SOMNAMBULISM [None]
